FAERS Safety Report 21046838 (Version 1)
Quarter: 2022Q3

REPORT INFORMATION
  Report Type: Spontaneous
  Country: CA (occurrence: CA)
  Receive Date: 20220706
  Receipt Date: 20220706
  Transmission Date: 20221027
  Serious: Yes (Other)
  Sender: FDA-Public Use
  Company Number: CA-MYLANLABS-2022M1049740

PATIENT
  Age: 51 Year
  Sex: Female
  Weight: 58.97 kg

DRUGS (3)
  1. SYNTHROID [Suspect]
     Active Substance: LEVOTHYROXINE SODIUM
     Indication: Hypothyroidism
     Dosage: 122 MILLIGRAM, 112 MG HALF TABLET ONCE A DAY EVERY 4 AM
     Route: 048
  2. SYNTHROID [Suspect]
     Active Substance: LEVOTHYROXINE SODIUM
     Indication: Hypothyroidism
     Dosage: 125 MILLIGRAM
     Route: 048
  3. RABEPRAZOLE [Concomitant]
     Active Substance: RABEPRAZOLE
     Indication: Reflux gastritis
     Dosage: QD,ONCE A DAY EVERY 9 PM FOR REFLUX
     Route: 065

REACTIONS (3)
  - Thyrotoxic crisis [Unknown]
  - Blood thyroid stimulating hormone increased [Unknown]
  - Blood thyroid stimulating hormone decreased [Unknown]
